FAERS Safety Report 20378783 (Version 6)
Quarter: 2022Q2

REPORT INFORMATION
  Report Type: Report from Study
  Country: CN (occurrence: None)
  Receive Date: 20220126
  Receipt Date: 20220614
  Transmission Date: 20220721
  Serious: Yes (Life-Threatening, Hospitalization)
  Sender: FDA-Public Use
  Company Number: CN-ROCHE-3009126

PATIENT
  Age: 71 Year
  Sex: Male
  Weight: 55 kg

DRUGS (2)
  1. UNSPECIFIED INGREDIENT [Suspect]
     Active Substance: UNSPECIFIED INGREDIENT
     Indication: Hepatocellular carcinoma
     Route: 065
  2. GLUTATHIONE [Concomitant]
     Active Substance: GLUTATHIONE
     Dates: start: 20210904

REACTIONS (1)
  - Craniocerebral injury [Recovering/Resolving]

NARRATIVE: CASE EVENT DATE: 20220117
